FAERS Safety Report 9228728 (Version 1)
Quarter: 2013Q2

REPORT INFORMATION
  Report Type: Spontaneous
  Country: US (occurrence: US)
  Receive Date: 20130412
  Receipt Date: 20130412
  Transmission Date: 20140414
  Serious: No
  Sender: FDA-Public Use
  Company Number: US-PFIZER INC-2013115294

PATIENT
  Age: 50 Year
  Sex: Female
  Weight: 81.6 kg

DRUGS (1)
  1. GEODON [Suspect]
     Indication: BIPOLAR DISORDER
     Dosage: 50 MG, 2X/DAY
     Dates: start: 201205

REACTIONS (1)
  - Mastication disorder [Not Recovered/Not Resolved]
